FAERS Safety Report 6210718-6 (Version None)
Quarter: 2009Q2

REPORT INFORMATION
  Report Type: 
  Country: None (occurrence: None)
  Receive Date: 20090528
  Receipt Date: 20090528
  Transmission Date: 20091009
  Serious: Yes (Other)
  Sender: FDA-Public Use
  Company Number: None

PATIENT
  Age: 30 Year
  Sex: Female
  Weight: 61.2356 kg

DRUGS (2)
  1. ROZEREM [Suspect]
     Indication: INSOMNIA
     Dosage: 8 MG DAILY, BEFORE BED PO
     Route: 048
     Dates: start: 20080801, end: 20080801
  2. ROZEREM [Suspect]
     Indication: INSOMNIA
     Dosage: 8 MG DAILY, BEFORE BED PO
     Route: 048
     Dates: start: 20081215, end: 20081215

REACTIONS (7)
  - FEELING ABNORMAL [None]
  - HEADACHE [None]
  - HYPERACUSIS [None]
  - MUSCLE TIGHTNESS [None]
  - MYALGIA [None]
  - NIGHTMARE [None]
  - PHOTOPHOBIA [None]
